FAERS Safety Report 8096686-3 (Version None)
Quarter: 2012Q1

REPORT INFORMATION
  Report Type: 
  Country: None (occurrence: None)
  Receive Date: 20120129
  Receipt Date: 20111201
  Transmission Date: 20120608
  Serious: No
  Sender: FDA-Public Use
  Company Number: US-ABBOTT-11P-163-0880322-00

PATIENT
  Age: 17 Year
  Sex: Female

DRUGS (5)
  1. METHYLPREDNISOLONE [Concomitant]
     Indication: GASTRIC DISORDER
  2. HUMIRA [Suspect]
  3. HUMIRA [Suspect]
     Dates: start: 20111111, end: 20111111
  4. NEXIUM [Concomitant]
     Indication: GASTRIC DISORDER
  5. HUMIRA [Suspect]
     Indication: INFLAMMATORY BOWEL DISEASE
     Dates: start: 20111028, end: 20111028

REACTIONS (7)
  - NAUSEA [None]
  - SINUSITIS [None]
  - FATIGUE [None]
  - PARANASAL SINUS HYPERSECRETION [None]
  - SINUS HEADACHE [None]
  - ABDOMINAL PAIN UPPER [None]
  - FACIAL PAIN [None]
